FAERS Safety Report 12211237 (Version 1)
Quarter: 2016Q1

REPORT INFORMATION
  Report Type: Spontaneous
  Country: US (occurrence: None)
  Receive Date: 20160324
  Receipt Date: 20160324
  Transmission Date: 20160526
  Serious: No
  Sender: FDA-Public Use
  Company Number: None

PATIENT
  Age: 7 Year
  Sex: Female

DRUGS (6)
  1. AFINITOR DISPERZ [Suspect]
     Active Substance: EVEROLIMUS
     Indication: BRAIN NEOPLASM BENIGN
     Route: 048
     Dates: start: 20150612
  2. DIVALPROEX [Concomitant]
     Active Substance: DIVALPROEX SODIUM
  3. TRILEPTAL [Concomitant]
     Active Substance: OXCARBAZEPINE
  4. DEPAKOTE [Concomitant]
     Active Substance: DIVALPROEX SODIUM
  5. OXCARBAZEPIN [Concomitant]
     Active Substance: OXCARBAZEPINE
  6. VIMPAT [Concomitant]
     Active Substance: LACOSAMIDE

REACTIONS (2)
  - Therapy change [None]
  - Lethargy [None]

NARRATIVE: CASE EVENT DATE: 201506
